FAERS Safety Report 13418163 (Version 1)
Quarter: 2017Q2

REPORT INFORMATION
  Report Type: Spontaneous
  Country: US (occurrence: US)
  Receive Date: 20170407
  Receipt Date: 20170407
  Transmission Date: 20170830
  Serious: No
  Sender: FDA-Public Use
  Company Number: US-PRINSTON PHARMACEUTICAL INC.-2017PRN00001

PATIENT
  Age: 34 Year
  Sex: Male
  Weight: 77.98 kg

DRUGS (4)
  1. VALSARTAN. [Suspect]
     Active Substance: VALSARTAN
     Dosage: 80 MG, 2X/DAY
     Dates: start: 2016, end: 20161231
  2. VALSARTAN. [Suspect]
     Active Substance: VALSARTAN
     Indication: HYPERTENSION
     Dosage: 80 MG, 1X/DAY
     Dates: start: 2016, end: 2016
  3. UNSPECIFIED MUSCLE RELAXANT [Concomitant]
     Indication: ROAD TRAFFIC ACCIDENT
     Dosage: UNK
     Dates: start: 201612, end: 201612
  4. VALSARTAN. [Suspect]
     Active Substance: VALSARTAN
     Indication: HYPERTENSION
     Dosage: 160 MG, 1X/DAY
     Route: 048
     Dates: start: 20161231

REACTIONS (4)
  - Road traffic accident [Unknown]
  - Back pain [Not Recovered/Not Resolved]
  - Nasal congestion [Not Recovered/Not Resolved]
  - Insomnia [Not Recovered/Not Resolved]

NARRATIVE: CASE EVENT DATE: 201612
